FAERS Safety Report 9506148 (Version 1)
Quarter: 2013Q1

REPORT INFORMATION
  Report Type: Spontaneous
  Country: US (occurrence: None)
  Receive Date: 20130301
  Receipt Date: 20130301
  Transmission Date: 20140127
  Serious: Yes (Congenital Anomaly)
  Sender: FDA-Public Use
  Company Number: PHEH2012US018520

PATIENT
  Age: 10 Week
  Sex: Male

DRUGS (2)
  1. TEGRETOL-XR [Suspect]
     Indication: EPILEPSY
     Route: 064
     Dates: start: 1989
  2. PAXIL (PAROXETINE HYDROCHLORIDE) [Concomitant]

REACTIONS (3)
  - Patent ductus arteriosus [None]
  - Cardiac murmur [None]
  - Atrial septal defect [None]
